FAERS Safety Report 26204742 (Version 1)
Quarter: 2025Q4

REPORT INFORMATION
  Report Type: Spontaneous
  Country: US (occurrence: US)
  Receive Date: 20251227
  Receipt Date: 20251227
  Transmission Date: 20260118
  Serious: Yes (Death, Hospitalization, Other)
  Sender: GLAXOSMITHKLINE
  Company Number: US-GSK-US2025GSK165958

PATIENT
  Age: 16 Year
  Sex: Female

DRUGS (2)
  1. LAMOTRIGINE [Suspect]
     Active Substance: LAMOTRIGINE
     Indication: Epilepsy
     Dosage: 3 EMPTY BOTTLES OF LAMOTRIGINE 25 MG
  2. HYDROXYZINE [Suspect]
     Active Substance: HYDROXYZINE HYDROCHLORIDE
     Indication: Product used for unknown indication
     Dosage: UNK

REACTIONS (6)
  - Suspected suicide [Fatal]
  - Toxicity to various agents [Fatal]
  - Disseminated intravascular coagulation [Fatal]
  - Acute kidney injury [Fatal]
  - Unresponsive to stimuli [Fatal]
  - Cardio-respiratory arrest [Unknown]
